FAERS Safety Report 4983782-X (Version None)
Quarter: 2006Q1

REPORT INFORMATION
  Report Type: 
  Country: None (occurrence: None)
  Receive Date: 20060302
  Receipt Date: 20060120
  Transmission Date: 20060701
  Serious: No
  Sender: FDA-Public Use
  Company Number: PHEH2006US01214

PATIENT
  Age: 11 Year
  Sex: Female

DRUGS (1)
  1. EXJADE [Suspect]
     Indication: BLOOD IRON INCREASED
     Dosage: 250 MG X 5 TABLETS
     Dates: start: 20060107

REACTIONS (3)
  - ABDOMINAL PAIN [None]
  - MEDICATION ERROR [None]
  - TRANSAMINASES INCREASED [None]
